FAERS Safety Report 25853007 (Version 1)
Quarter: 2025Q3

REPORT INFORMATION
  Report Type: Spontaneous
  Country: US (occurrence: US)
  Receive Date: 20250926
  Receipt Date: 20250926
  Transmission Date: 20251021
  Serious: No
  Sender: EPIC PHARM
  Company Number: US-EPICPHARMA-US-2025EPCSPO01034

PATIENT

DRUGS (1)
  1. DEXTROAMPHETAMINE SACCHARATE, AMPHETAMINE ASPARTATE, DEXTROAMPHETAMINE [Suspect]
     Active Substance: AMPHETAMINE ASPARTATE\AMPHETAMINE SULFATE\DEXTROAMPHETAMINE SACCHARATE\DEXTROAMPHETAMINE SULFATE
     Indication: Product used for unknown indication
     Route: 065

REACTIONS (10)
  - Anxiety [Unknown]
  - Pain [Unknown]
  - Headache [Unknown]
  - Tension headache [Unknown]
  - Brain fog [Unknown]
  - Disturbance in attention [Unknown]
  - Feeling abnormal [Unknown]
  - Blood pressure increased [Unknown]
  - Therapeutic response decreased [Unknown]
  - Product substitution issue [Unknown]
